FAERS Safety Report 9645739 (Version 1)
Quarter: 2013Q4

REPORT INFORMATION
  Report Type: Spontaneous
  Country: US (occurrence: None)
  Receive Date: 20131024
  Receipt Date: 20131024
  Transmission Date: 20140711
  Serious: Yes (Other)
  Sender: FDA-Public Use
  Company Number: None

PATIENT
  Age: 8 Year
  Sex: Female
  Weight: 24 kg

DRUGS (8)
  1. ADVAIR [Suspect]
     Indication: ASTHMA
     Dosage: 2 PUFFS, RESPIRATORY
  2. MONTELUKAST [Concomitant]
  3. MULTIVITAMIN [Concomitant]
  4. METALONIN [Concomitant]
  5. CETIRIZINE [Concomitant]
  6. ALBUTEROL [Concomitant]
  7. MIRALAX [Concomitant]
  8. MOMETASONE NASAL SPRAY [Concomitant]

REACTIONS (3)
  - Adrenal insufficiency [None]
  - Infection [None]
  - Growth retardation [None]
